FAERS Safety Report 5886861-8 (Version None)
Quarter: 2008Q3

REPORT INFORMATION
  Report Type: 
  Country: None (occurrence: None)
  Receive Date: 20080915
  Receipt Date: 20080825
  Transmission Date: 20090109
  Serious: Yes (Death)
  Sender: FDA-Public Use
  Company Number: 2008EU001784

PATIENT
  Sex: 0

DRUGS (1)
  1. PROTOPIC [Suspect]
     Dosage: 0.1%, PRN, TRANSPLACENTAL
     Route: 064
     Dates: start: 20070301, end: 20080101

REACTIONS (1)
  - MENINGOMYELOCELE [None]
